FAERS Safety Report 10796144 (Version 3)
Quarter: 2015Q1

REPORT INFORMATION
  Report Type: Spontaneous
  Country: JP (occurrence: JP)
  Receive Date: 20150216
  Receipt Date: 20150304
  Transmission Date: 20150721
  Serious: Yes (Hospitalization, Disabling, Other)
  Sender: FDA-Public Use
  Company Number: JP-BRISTOL-MYERS SQUIBB COMPANY-BMS-2015-008257

PATIENT
  Age: 71 Year
  Sex: Male

DRUGS (6)
  1. ALLELOCK [Concomitant]
     Active Substance: OLOPATADINE HYDROCHLORIDE
     Indication: PRODUCT USED FOR UNKNOWN INDICATION
     Dosage: 10 MG, UNK
     Route: 048
  2. ERBITUX [Suspect]
     Active Substance: CETUXIMAB
     Indication: NASAL SINUS CANCER
     Dosage: 600 MG, QWK
     Route: 041
     Dates: start: 20141112, end: 20141126
  3. PACLITAXEL. [Concomitant]
     Active Substance: PACLITAXEL
     Indication: NASAL SINUS CANCER
     Dosage: 120 MG, QWK
     Route: 041
     Dates: start: 20141112, end: 20141126
  4. AMLODIPINE [Concomitant]
     Active Substance: AMLODIPINE BESYLATE
     Indication: PRODUCT USED FOR UNKNOWN INDICATION
     Dosage: 5 MG, UNK
     Route: 048
  5. NEXIUM [Concomitant]
     Active Substance: ESOMEPRAZOLE MAGNESIUM
     Indication: PRODUCT USED FOR UNKNOWN INDICATION
     Dosage: 20 MG, UNK
     Route: 048
  6. PREDONINE [Concomitant]
     Active Substance: PREDNISOLONE\PREDNISOLONE ACETATE\PREDNISOLONE SODIUM SUCCINATE
     Indication: PRODUCT USED FOR UNKNOWN INDICATION
     Dosage: 5 MG, UNK
     Route: 048

REACTIONS (8)
  - Conjunctivitis [Unknown]
  - Mucous membrane disorder [Unknown]
  - Corneal perforation [Unknown]
  - Corneal epithelium defect [Unknown]
  - Eye discharge [Unknown]
  - Blepharitis [Unknown]
  - Ulcerative keratitis [Unknown]
  - Skin disorder [Unknown]

NARRATIVE: CASE EVENT DATE: 20141126
